FAERS Safety Report 17202385 (Version 1)
Quarter: 2019Q4

REPORT INFORMATION
  Report Type: Spontaneous
  Country: US (occurrence: US)
  Receive Date: 20191226
  Receipt Date: 20191226
  Transmission Date: 20200122
  Serious: Yes (Other)
  Sender: FDA-Public Use
  Company Number: US-BRACCO-2019US06817

PATIENT
  Age: 78 Year
  Sex: Female

DRUGS (3)
  1. SODIUM IODIDE I 131 [Suspect]
     Active Substance: SODIUM IODIDE I-131
     Indication: THYROID CANCER
     Dosage: 75 MCI
     Route: 048
     Dates: start: 199604
  2. SODIUM IODIDE I 131 [Suspect]
     Active Substance: SODIUM IODIDE I-131
     Indication: METASTASES TO LUNG
     Dosage: 299 MCI
     Route: 048
     Dates: start: 200205
  3. SODIUM IODIDE I 131 [Suspect]
     Active Substance: SODIUM IODIDE I-131
     Indication: METASTASES TO LUNG
     Dosage: 298 MCI
     Route: 048
     Dates: start: 199912

REACTIONS (4)
  - Dysphagia [Unknown]
  - Oral discomfort [Unknown]
  - Aptyalism [Unknown]
  - Ageusia [Unknown]

NARRATIVE: CASE EVENT DATE: 199604
